FAERS Safety Report 10057971 (Version 1)
Quarter: 2014Q2

REPORT INFORMATION
  Report Type: Spontaneous
  Country: JP (occurrence: JP)
  Receive Date: 20140404
  Receipt Date: 20140404
  Transmission Date: 20141212
  Serious: Yes (Death, Other)
  Sender: FDA-Public Use
  Company Number: JP-ROCHE-1374574

PATIENT
  Age: 7 Decade
  Sex: Male

DRUGS (8)
  1. CELLCEPT [Suspect]
     Indication: PROPHYLAXIS AGAINST TRANSPLANT REJECTION
     Dosage: DOSAGE IS UNCERTAIN.
     Route: 048
  2. CELLCEPT [Suspect]
     Indication: KIDNEY TRANSPLANT REJECTION
     Route: 048
  3. CICLOSPORIN [Concomitant]
     Indication: PROPHYLAXIS AGAINST TRANSPLANT REJECTION
     Dosage: DOSAGE IS UNCERTAIN.
     Route: 065
  4. CICLOSPORIN [Concomitant]
     Indication: KIDNEY TRANSPLANT REJECTION
     Route: 065
  5. MIZORIBINE [Concomitant]
     Indication: PROPHYLAXIS AGAINST TRANSPLANT REJECTION
     Dosage: DOSAGE IS UNCERTAIN.
     Route: 065
  6. MIZORIBINE [Concomitant]
     Indication: KIDNEY TRANSPLANT REJECTION
     Route: 065
  7. METHYLPREDNISOLONE [Concomitant]
     Indication: PROPHYLAXIS AGAINST TRANSPLANT REJECTION
     Dosage: DOSAGE IS UNCERTAIN.
     Route: 065
  8. METHYLPREDNISOLONE [Concomitant]
     Indication: KIDNEY TRANSPLANT REJECTION
     Route: 065

REACTIONS (4)
  - Lung adenocarcinoma [Fatal]
  - Peritoneal carcinoma metastatic [Fatal]
  - Pleurisy [Unknown]
  - Pneumonia [Unknown]
